FAERS Safety Report 7528815-1 (Version None)
Quarter: 2011Q2

REPORT INFORMATION
  Report Type: 
  Country: None (occurrence: None)
  Receive Date: 20110607
  Receipt Date: 20110110
  Transmission Date: 20111010
  Serious: No
  Sender: FDA-Public Use
  Company Number: US-ASTRAZENECA-2011SE03290

PATIENT
  Sex: Female

DRUGS (3)
  1. BENADRYL [Concomitant]
  2. PRILOSEC OTC [Suspect]
     Indication: GASTROOESOPHAGEAL REFLUX DISEASE
     Route: 048
     Dates: start: 20110101
  3. ANTIHYPERTENSIVES [Concomitant]

REACTIONS (1)
  - ERUCTATION [None]
